FAERS Safety Report 10754741 (Version 2)
Quarter: 2015Q1

REPORT INFORMATION
  Report Type: Spontaneous
  Country: US (occurrence: US)
  Receive Date: 20150202
  Receipt Date: 20150204
  Transmission Date: 20150721
  Serious: Yes (Other)
  Sender: FDA-Public Use
  Company Number: US-PFIZER INC-2015039227

PATIENT
  Sex: Female

DRUGS (1)
  1. LYRICA [Suspect]
     Active Substance: PREGABALIN
     Indication: NEURALGIA
     Dosage: UNK

REACTIONS (9)
  - Cervical vertebral fracture [Unknown]
  - Pain [Unknown]
  - Weight increased [Unknown]
  - Therapeutic response unexpected [Unknown]
  - Frustration [Unknown]
  - Gastric perforation [Unknown]
  - Dyspnoea [Unknown]
  - Balance disorder [Unknown]
  - Pre-existing condition improved [Unknown]
